FAERS Safety Report 4979761-9 (Version None)
Quarter: 2006Q2

REPORT INFORMATION
  Report Type: 
  Country: None (occurrence: None)
  Receive Date: 20060418
  Receipt Date: 20060405
  Transmission Date: 20061013
  Serious: Yes (Other)
  Sender: FDA-Public Use
  Company Number: 2006020004

PATIENT
  Age: 49 Year
  Sex: Female
  Weight: 62.5964 kg

DRUGS (2)
  1. DILANTIN KAPSEAL [Suspect]
     Indication: GRAND MAL CONVULSION
     Dosage: 300 MG (100 MG, 3 IN 1 D), ORAL
     Route: 048
     Dates: start: 19860101
  2. PHENYTOIN [Suspect]
     Indication: GRAND MAL CONVULSION

REACTIONS (15)
  - BLOOD GLUCOSE INCREASED [None]
  - BODY TEMPERATURE DECREASED [None]
  - CHEST PAIN [None]
  - CONDITION AGGRAVATED [None]
  - CONFUSIONAL STATE [None]
  - CONVULSION [None]
  - EYE IRRITATION [None]
  - GRAND MAL CONVULSION [None]
  - HYPOGLYCAEMIA [None]
  - INSULIN RESISTANCE [None]
  - LOSS OF CONSCIOUSNESS [None]
  - MALAISE [None]
  - PRURITUS [None]
  - RESPIRATORY RATE INCREASED [None]
  - SYNCOPE [None]
